FAERS Safety Report 25857039 (Version 2)
Quarter: 2025Q4

REPORT INFORMATION
  Report Type: Report from Study
  Country: EU (occurrence: EU)
  Receive Date: 20250929
  Receipt Date: 20251017
  Transmission Date: 20260119
  Serious: Yes (Death, Hospitalization, Other)
  Sender: CELLTRION
  Company Number: EU-PHARMAGEN-PHARMAGEN20250902a_Lit

PATIENT

DRUGS (15)
  1. BEVACIZUMAB [Suspect]
     Active Substance: BEVACIZUMAB
     Indication: Colorectal cancer
     Dosage: UNK
     Dates: start: 202402, end: 202404
  2. BEVACIZUMAB [Suspect]
     Active Substance: BEVACIZUMAB
     Indication: Metastases to liver
     Dosage: UNK, CYCLIC, COMBINATION OF XELIRI AND BEVACIZUMAB (TWO CYCLE ADMINISTERED)
     Dates: start: 202402, end: 202404
  3. CAPECITABINE [Suspect]
     Active Substance: CAPECITABINE
     Indication: Colorectal cancer
     Dates: start: 202402, end: 202404
  4. IRINOTECAN [Suspect]
     Active Substance: IRINOTECAN
     Indication: Colorectal cancer
     Dosage: UNK
     Dates: start: 202402, end: 202404
  5. IRINOTECAN [Suspect]
     Active Substance: IRINOTECAN
     Indication: Metastases to liver
     Dosage: CYCLIC, COMBINATION OF XELIRI AND BEVACIZUMAB (TWO CYCLE ADMINISTERED)
     Dates: start: 202402, end: 202404
  6. XELODA [Suspect]
     Active Substance: CAPECITABINE
     Indication: Colorectal cancer
     Dosage: UNK, CYCLIC XELOX REGIMEN (4CYCLES)
     Route: 048
  7. XELODA [Suspect]
     Active Substance: CAPECITABINE
     Indication: Metastases to liver
     Dosage: UNK, CYCLIC, COMBINATION OF XELIRI AND BEVACIZUMAB (TWO CYCLE ADMINISTERED)
     Dates: start: 202402, end: 202404
  8. OXALIPLATIN [Concomitant]
     Active Substance: OXALIPLATIN
     Indication: Colorectal cancer
     Dosage: UNK, XELOX REGIMEN (4 CYCLES)
  9. OXALIPLATIN [Concomitant]
     Active Substance: OXALIPLATIN
     Indication: Metastases to liver
  10. FLUOROURACIL [Concomitant]
     Active Substance: FLUOROURACIL
     Indication: Colorectal cancer
     Dosage: FOLFOX6 AND PANITUMUMAB
     Dates: start: 2022
  11. FLUOROURACIL [Concomitant]
     Active Substance: FLUOROURACIL
     Indication: Metastases to liver
  12. LEUCOVORIN CALCIUM [Concomitant]
     Active Substance: LEUCOVORIN CALCIUM
     Indication: Colorectal cancer
     Dosage: FOLFOX6 AND PANITUMUMAB
     Dates: start: 2022
  13. LEUCOVORIN CALCIUM [Concomitant]
     Active Substance: LEUCOVORIN CALCIUM
     Indication: Metastases to liver
  14. PANITUMUMAB [Concomitant]
     Active Substance: PANITUMUMAB
     Indication: Colorectal cancer
     Dosage: FOLFOX6 AND PANITUMUMAB
     Dates: start: 2022
  15. PANITUMUMAB [Concomitant]
     Active Substance: PANITUMUMAB
     Indication: Metastases to liver

REACTIONS (4)
  - Death [Fatal]
  - Condition aggravated [Recovered/Resolved]
  - Diarrhoea [Recovered/Resolved]
  - Pyrexia [Recovered/Resolved]

NARRATIVE: CASE EVENT DATE: 20240401
